FAERS Safety Report 9220685 (Version 1)
Quarter: 2013Q1

REPORT INFORMATION
  Report Type: Spontaneous
  Country: US (occurrence: None)
  Receive Date: 20120831
  Receipt Date: 20120831
  Transmission Date: 20140127
  Serious: No
  Sender: FDA-Public Use
  Company Number: 1000030228

PATIENT
  Age: 79 Year
  Sex: Female

DRUGS (9)
  1. DALIRESP [Suspect]
     Indication: CHRONIC OBSTRUCTIVE PULMONARY DISEASE
     Dates: start: 201203
  2. PREDNISONE (PREDNISONE) (PREDNISONE) [Concomitant]
  3. AVELOX (MOXIFLOXACIN HYDROCHLORIDE) (MOXIFLOXACIN HYDROCHLORIDE) [Concomitant]
  4. PLAVIX (CLOPIDOGREL BISULFATE) (CLOPIDOGREL BISULFATE) [Concomitant]
  5. DIOVAN (VALSARTAN) (VALSARTAN) [Concomitant]
  6. VERAPAMIL (VERAPAMIL) (VERAPAMIL) [Concomitant]
  7. SPIRIVA (TIOTROPIUM BROMIDE) (TIOTROPIUM BROMIDE) [Concomitant]
  8. BONIVA (IBANDRONATE SODIUM) (IBANDRONATE SODIUM) [Concomitant]
  9. SYMBICORT (BUDESONIDE W/FORMOTEROL FUMARATE) (BUDESONIDE W/FORMOTEROL FUMARATE) [Concomitant]

REACTIONS (2)
  - Diarrhoea [None]
  - Tremor [None]
